FAERS Safety Report 12885710 (Version 2)
Quarter: 2016Q4

REPORT INFORMATION
  Report Type: Spontaneous
  Country: GR (occurrence: GR)
  Receive Date: 20161026
  Receipt Date: 20161028
  Transmission Date: 20170207
  Serious: Yes (Other)
  Sender: FDA-Public Use
  Company Number: PHHY2016GR145629

PATIENT
  Age: 16 Year
  Sex: Female

DRUGS (1)
  1. CICLOSPORIN [Suspect]
     Active Substance: CYCLOSPORINE
     Indication: NEPHROTIC SYNDROME
     Route: 065

REACTIONS (10)
  - Gastrointestinal oedema [Unknown]
  - Glomerulonephritis [Unknown]
  - Nephrotic syndrome [Unknown]
  - Toxicity to various agents [Unknown]
  - Acute kidney injury [Unknown]
  - Pericarditis [Unknown]
  - Disease recurrence [Unknown]
  - Pleurisy [Unknown]
  - Focal segmental glomerulosclerosis [Unknown]
  - Oedema [Unknown]
